FAERS Safety Report 7037082-7 (Version None)
Quarter: 2010Q4

REPORT INFORMATION
  Report Type: 
  Country: None (occurrence: None)
  Receive Date: 20101011
  Receipt Date: 20101001
  Transmission Date: 20110411
  Serious: Yes (Hospitalization, Other)
  Sender: FDA-Public Use
  Company Number: US-ASTRAZENECA-2005UW15508

PATIENT
  Age: 26275 Day
  Sex: Female

DRUGS (2)
  1. CRESTOR [Suspect]
     Indication: BLOOD CHOLESTEROL INCREASED
     Route: 048
     Dates: start: 20040601
  2. COUMADIN [Concomitant]
     Indication: MITRAL VALVE REPLACEMENT

REACTIONS (3)
  - NEPHRECTOMY [None]
  - RENAL DISORDER [None]
  - RENAL HAEMORRHAGE [None]
